FAERS Safety Report 10021080 (Version 1)
Quarter: 2014Q1

REPORT INFORMATION
  Report Type: Spontaneous
  Country: US (occurrence: US)
  Receive Date: 20140319
  Receipt Date: 20140319
  Transmission Date: 20141002
  Serious: No
  Sender: FDA-Public Use
  Company Number: US-PFIZER INC-2014077900

PATIENT
  Age: 55 Year
  Sex: Male

DRUGS (18)
  1. LYRICA [Suspect]
     Dosage: UNK
  2. EFFEXOR [Suspect]
     Dosage: UNK
  3. SKELAXIN [Suspect]
     Dosage: UNK
  4. METHYLPHENIDATE HYDROCHLORIDE [Suspect]
     Dosage: UNK
  5. CLINDAMYCIN HCL [Suspect]
     Dosage: UNK
  6. LITHIUM CARBONATE [Suspect]
     Dosage: UNK
  7. NAPROSYN [Suspect]
     Dosage: UNK
  8. ORUVAIL [Suspect]
     Dosage: UNK
  9. TOLECTIN [Suspect]
     Dosage: UNK
  10. TRAZODONE [Suspect]
     Dosage: UNK
  11. PAXIL [Suspect]
     Dosage: UNK
  12. NABUMETONE [Suspect]
     Dosage: UNK
  13. REMERON [Suspect]
     Dosage: UNK
  14. SEROQUEL [Suspect]
     Dosage: UNK
  15. HYOSCYAMINE SULFATE [Suspect]
     Dosage: UNK
  16. CYCLOBENZAPRINE [Suspect]
     Dosage: UNK
  17. CAMPHOR [Suspect]
     Dosage: UNK
  18. FLEXERIL [Suspect]
     Dosage: UNK

REACTIONS (1)
  - Drug hypersensitivity [Unknown]
